FAERS Safety Report 23937500 (Version 1)
Quarter: 2024Q2

REPORT INFORMATION
  Report Type: Spontaneous
  Country: US (occurrence: US)
  Receive Date: 20240604
  Receipt Date: 20240604
  Transmission Date: 20240716
  Serious: Yes (Hospitalization)
  Sender: FDA-Public Use
  Company Number: US-AMGEN-USASP2024107809

PATIENT
  Age: 46 Year
  Sex: Female

DRUGS (3)
  1. PREDNISONE [Suspect]
     Active Substance: PREDNISONE
     Indication: Haemolytic anaemia
     Dosage: UNK
     Route: 065
  2. HUMAN IMMUNOGLOBULIN G [Concomitant]
     Active Substance: HUMAN IMMUNOGLOBULIN G
     Indication: Haemolytic anaemia
     Route: 042
  3. HUMAN RED BLOOD CELL [Concomitant]
     Active Substance: HUMAN RED BLOOD CELL
     Indication: Haemolytic anaemia
     Dosage: UNK (TOTAL 30 TRANSFUSION UNITS )
     Route: 065

REACTIONS (5)
  - Cold type haemolytic anaemia [Recovered/Resolved]
  - Bone marrow failure [Unknown]
  - Myelosuppression [Unknown]
  - Erythroid maturation arrest [Unknown]
  - Marrow hyperplasia [Unknown]
